FAERS Safety Report 14133921 (Version 6)
Quarter: 2018Q3

REPORT INFORMATION
  Report Type: Spontaneous
  Country: US (occurrence: US)
  Receive Date: 20171027
  Receipt Date: 20180828
  Transmission Date: 20181010
  Serious: No
  Sender: FDA-Public Use
  Company Number: US-PFIZER INC-2017463178

PATIENT
  Age: 62 Year
  Sex: Female
  Weight: 74 kg

DRUGS (2)
  1. IBRANCE [Suspect]
     Active Substance: PALBOCICLIB
     Indication: BREAST CANCER METASTATIC
     Dosage: 100 MG, CYCLIC (DAY 1?21 OF 28 DAYS)
     Route: 048
     Dates: start: 201707, end: 2017
  2. IBRANCE [Suspect]
     Active Substance: PALBOCICLIB
     Dosage: 100 MG, CYCLIC (1 CAPSULE DAILY 1 ? 21/DAYS OF 28 DAYS)/ (D1?21 Q 28 DAYS)
     Route: 048
     Dates: start: 20171014

REACTIONS (11)
  - Epistaxis [Unknown]
  - Vomiting [Unknown]
  - Cough [Unknown]
  - Blood glucose increased [Unknown]
  - White blood cell count decreased [Unknown]
  - Spinal pain [Unknown]
  - Dizziness [Unknown]
  - Blood oestrogen decreased [Unknown]
  - Fatigue [Unknown]
  - Blood glucose fluctuation [Unknown]
  - Back pain [Unknown]

NARRATIVE: CASE EVENT DATE: 20180821
